FAERS Safety Report 4750881-7 (Version None)
Quarter: 2005Q3

REPORT INFORMATION
  Report Type: 
  Country: None (occurrence: None)
  Receive Date: 20050818
  Receipt Date: 20050812
  Transmission Date: 20060218
  Serious: Yes (Other)
  Sender: FDA-Public Use
  Company Number: 2003191493US

PATIENT
  Age: 8 Year
  Sex: Male
  Weight: 19.5 kg

DRUGS (4)
  1. GENOTROPIN [Suspect]
     Indication: SMALL FOR DATES BABY
     Dosage: 1.4 MG (1.4 MG, HR), SUBCUTANEOUS
     Route: 058
     Dates: start: 20030908
  2. SINGULAIR [Concomitant]
  3. ADVAIR DISKUS 100/50 [Concomitant]
  4. CHILDREN'S ADVIL [Concomitant]

REACTIONS (3)
  - DEVICE MALFUNCTION [None]
  - HEADACHE [None]
  - INCORRECT DOSE ADMINISTERED [None]
